FAERS Safety Report 10069864 (Version 2)
Quarter: 2014Q2

REPORT INFORMATION
  Report Type: Spontaneous
  Country: GB (occurrence: None)
  Receive Date: 20140408
  Receipt Date: 20140425
  Transmission Date: 20141212
  Serious: Yes (Life-Threatening, Hospitalization)
  Sender: FDA-Public Use
  Company Number: FK201401161

PATIENT
  Age: 70 Year
  Sex: Male
  Weight: 74 kg

DRUGS (8)
  1. VANCOMYCIN (MANUFACTURER UNKNOWN) (VANCOMYCIN) (VANCOMYCIN) [Suspect]
     Indication: ANTIBIOTIC PROPHYLAXIS
     Dosage: 750MG, 2 IN 1 D, INTRAVENOUS (NOT OTHERWISE SPECIFIED)
     Route: 042
     Dates: start: 20140228, end: 20140228
  2. BERIPLEX P/N/00357601/ (PLASMA PROTEIN FRACTION HUMAN) [Suspect]
     Indication: HAEMORRHAGE PROPHYLAXIS
     Dosage: 2000 IU, 1 IN 1 D, INTRAVENOUS (NOT OTHERWISE SPECIFIED)?
     Route: 042
     Dates: start: 20140228, end: 20140228
  3. AD-CAL-D3 (LEKOVIT CA) [Concomitant]
  4. DIPROBASE (DIPROBASE/01132701) [Concomitant]
  5. WARFARIN (WARFARIN) [Concomitant]
  6. BISOPROLOL (BISOPROLOL) [Concomitant]
  7. CHLORHEXIDINE (CHLORHEXIDINE) [Concomitant]
  8. DIGOXIN (DIGOXIN) [Concomitant]

REACTIONS (8)
  - Respiratory distress [None]
  - Blood pressure increased [None]
  - Dyspnoea [None]
  - Urticaria [None]
  - Pruritus [None]
  - Rash [None]
  - Erythema [None]
  - Unevaluable event [None]
